FAERS Safety Report 24084131 (Version 2)
Quarter: 2024Q3

REPORT INFORMATION
  Report Type: Spontaneous
  Country: US (occurrence: US)
  Receive Date: 20240712
  Receipt Date: 20240725
  Transmission Date: 20241016
  Serious: Yes (Other)
  Sender: PFIZER
  Company Number: US-PFIZER INC-PV202400090509

PATIENT
  Age: 73 Year
  Sex: Male

DRUGS (10)
  1. VYNDAMAX [Suspect]
     Active Substance: TAFAMIDIS
     Indication: Cardiac amyloidosis
     Dosage: 61 MG, 1X/DAY
     Route: 048
  2. VYNDAMAX [Suspect]
     Active Substance: TAFAMIDIS
     Indication: Cardiac amyloidosis
  3. VYNDAMAX [Suspect]
     Active Substance: TAFAMIDIS
     Indication: Atrial flutter
  4. VYNDAMAX [Suspect]
     Active Substance: TAFAMIDIS
     Indication: Coronary artery disease
  5. VYNDAMAX [Suspect]
     Active Substance: TAFAMIDIS
     Indication: Cardiac failure congestive
  6. VYNDAMAX [Suspect]
     Active Substance: TAFAMIDIS
     Indication: Arteriosclerosis coronary artery
  7. VYNDAMAX [Suspect]
     Active Substance: TAFAMIDIS
     Indication: Atrial flutter
  8. VYNDAMAX [Suspect]
     Active Substance: TAFAMIDIS
     Indication: Hypercholesterolaemia
  9. PRADAXA [Concomitant]
     Active Substance: DABIGATRAN ETEXILATE MESYLATE
     Indication: Cerebrovascular accident
     Dosage: UNK
  10. ASPIRIN [Concomitant]
     Active Substance: ASPIRIN
     Dosage: UNK

REACTIONS (16)
  - Subclavian artery stenosis [Not Recovered/Not Resolved]
  - Carotid artery stenosis [Unknown]
  - Arrhythmia [Not Recovered/Not Resolved]
  - Mitral valve incompetence [Unknown]
  - Myocardial ischaemia [Unknown]
  - Myocardial infarction [Unknown]
  - Atrial flutter [Not Recovered/Not Resolved]
  - Lethargy [Unknown]
  - Fatigue [Unknown]
  - Arthritis [Unknown]
  - Coronary artery disease [Not Recovered/Not Resolved]
  - Anxiety [Not Recovered/Not Resolved]
  - Depression [Not Recovered/Not Resolved]
  - Hypercholesterolaemia [Not Recovered/Not Resolved]
  - Conduction disorder [Unknown]
  - Snoring [Unknown]

NARRATIVE: CASE EVENT DATE: 20200101
